FAERS Safety Report 21519820 (Version 2)
Quarter: 2022Q4

REPORT INFORMATION
  Report Type: Spontaneous
  Country: US (occurrence: US)
  Receive Date: 20221028
  Receipt Date: 20221103
  Transmission Date: 20230112
  Serious: Yes (Other)
  Sender: FDA-Public Use
  Company Number: US-MYLANLABS-2022M1116476

PATIENT
  Age: 84 Year
  Sex: Male

DRUGS (13)
  1. GLYBURIDE [Suspect]
     Active Substance: GLYBURIDE
     Indication: Diabetes mellitus
     Dosage: 2.5 MILLIGRAM, QD
     Route: 048
  2. GABAPENTIN [Suspect]
     Active Substance: GABAPENTIN
     Indication: Pain
     Dosage: 300 MILLIGRAM, BID
     Route: 048
  3. DIGOXIN [Suspect]
     Active Substance: DIGOXIN
     Indication: Atrial fibrillation
     Dosage: 125 MICROGRAM, QD
     Route: 048
  4. ETODOLAC [Concomitant]
     Active Substance: ETODOLAC
     Indication: Pain
     Dosage: 400 MILLIGRAM, QD
     Route: 048
  5. DOCUSATE SODIUM [Concomitant]
     Active Substance: DOCUSATE SODIUM
     Indication: Constipation
     Dosage: 100 MILLIGRAM, QD
     Route: 048
  6. MEMANTINE [Concomitant]
     Active Substance: MEMANTINE
     Indication: Dementia
     Dosage: 10 MILLIGRAM, BID (LATER, RE-INITIATED.)
     Route: 048
  7. WARFARIN [Concomitant]
     Active Substance: WARFARIN
     Dosage: UNK UNK, 1X/DAY
     Route: 048
  8. IRON [Concomitant]
     Active Substance: IRON
     Indication: Anaemia
     Dosage: UNK UNK, QD
     Route: 048
  9. METOPROLOL [Concomitant]
     Active Substance: METOPROLOL
     Indication: Hypertension
     Dosage: 25 MILLIGRAM, BID
     Route: 048
  10. METOPROLOL [Concomitant]
     Active Substance: METOPROLOL
     Indication: Atrial fibrillation
  11. ACETAMINOPHEN [Concomitant]
     Active Substance: ACETAMINOPHEN
     Indication: Pain
     Dosage: 650 MILLIGRAM, Q6H
     Route: 048
  12. LACTULOSE [Concomitant]
     Active Substance: LACTULOSE
     Dosage: UNK UNK, PRN
     Route: 048
  13. VITAMINS NOS [Concomitant]
     Active Substance: VITAMINS
     Indication: Vitamin supplementation
     Dosage: UNK UNK, QD
     Route: 048

REACTIONS (5)
  - Cognitive disorder [Recovering/Resolving]
  - Decreased activity [Recovering/Resolving]
  - Gait disturbance [Recovered/Resolved]
  - Fall [Recovered/Resolved]
  - Contraindicated product administered [Unknown]
